FAERS Safety Report 25504446 (Version 2)
Quarter: 2025Q3

REPORT INFORMATION
  Report Type: Spontaneous
  Country: US (occurrence: US)
  Receive Date: 20250702
  Receipt Date: 20250814
  Transmission Date: 20251021
  Serious: No
  Sender: VERTEX
  Company Number: US-VERTEX PHARMACEUTICALS-2025-010615

PATIENT
  Sex: Male

DRUGS (2)
  1. JOURNAVX [Suspect]
     Active Substance: SUZETRIGINE
     Indication: Back pain
     Route: 048
     Dates: start: 20250324
  2. MELOXICAM [Concomitant]
     Active Substance: MELOXICAM
     Indication: Musculoskeletal stiffness
     Dosage: UNK, QD (DAILY)

REACTIONS (3)
  - Insomnia [Not Recovered/Not Resolved]
  - Off label use [Unknown]
  - Product prescribing issue [Unknown]

NARRATIVE: CASE EVENT DATE: 20250324
